FAERS Safety Report 7400434-7 (Version None)
Quarter: 2011Q1

REPORT INFORMATION
  Report Type: 
  Country: None (occurrence: None)
  Receive Date: 20110330
  Receipt Date: 20110317
  Transmission Date: 20110831
  Serious: Yes (Hospitalization, Disabling, Other)
  Sender: FDA-Public Use
  Company Number: 2010MA004182

PATIENT
  Sex: Female
  Weight: 90.7194 kg

DRUGS (18)
  1. LIPITOR [Concomitant]
  2. IBUPROFEN [Concomitant]
  3. ALBUTEROL [Concomitant]
  4. PREMARIN [Concomitant]
  5. ROPINIROLE [Concomitant]
  6. VICODIN [Concomitant]
  7. ROSUVASTATIN [Concomitant]
  8. XOPENEX [Concomitant]
  9. PAXIL [Concomitant]
  10. REQUIP [Concomitant]
  11. METOCLOPRAMIDE [Suspect]
     Indication: ABDOMINAL PAIN
     Dosage: 10 MG;QID;PO
     Route: 048
     Dates: start: 20010301, end: 20090301
  12. EFFEXOR [Concomitant]
  13. GABAPENTIN [Concomitant]
  14. ESOMEPRAZOLE [Concomitant]
  15. HYDROCHLOROTHIAZIDE [Concomitant]
  16. ATROVENT [Concomitant]
  17. AMLODIPINE [Concomitant]
  18. DOMEPERIDONE [Concomitant]

REACTIONS (37)
  - ANXIETY [None]
  - DUBIN-JOHNSON SYNDROME [None]
  - ECONOMIC PROBLEM [None]
  - NEUROPATHY PERIPHERAL [None]
  - SLEEP APNOEA SYNDROME [None]
  - PNEUMONIA [None]
  - EXTRAPYRAMIDAL DISORDER [None]
  - BALANCE DISORDER [None]
  - TACHYPNOEA [None]
  - HEPATIC STEATOSIS [None]
  - ACTIVITIES OF DAILY LIVING IMPAIRED [None]
  - GAIT DISTURBANCE [None]
  - JAW DISORDER [None]
  - WEIGHT DECREASED [None]
  - TREATMENT NONCOMPLIANCE [None]
  - PSYCHIATRIC SYMPTOM [None]
  - CEREBRAL ATROPHY [None]
  - NERVOUS SYSTEM DISORDER [None]
  - PAIN [None]
  - TREMOR [None]
  - SUPRAVENTRICULAR TACHYCARDIA [None]
  - BRUXISM [None]
  - HELICOBACTER TEST POSITIVE [None]
  - TARDIVE DYSKINESIA [None]
  - UNEVALUABLE EVENT [None]
  - MENTAL DISORDER [None]
  - HYPOREFLEXIA [None]
  - HYPOTHYROIDISM [None]
  - RESPIRATORY ALKALOSIS [None]
  - DYSKINESIA [None]
  - DEFORMITY [None]
  - RENAL CYST [None]
  - MULTIPLE INJURIES [None]
  - INSOMNIA [None]
  - HEAD TITUBATION [None]
  - DYSPNOEA [None]
  - DYSPNOEA EXERTIONAL [None]
